FAERS Safety Report 12608323 (Version 1)
Quarter: 2016Q3

REPORT INFORMATION
  Report Type: Spontaneous
  Country: AU (occurrence: AU)
  Receive Date: 20160729
  Receipt Date: 20160729
  Transmission Date: 20161109
  Serious: Yes (Other)
  Sender: FDA-Public Use
  Company Number: AU-PFIZER INC-2016364722

PATIENT
  Age: 11 Year
  Sex: Male

DRUGS (1)
  1. GENOTROPIN GOQUICK [Suspect]
     Active Substance: SOMATROPIN
     Dosage: 12 MG, UNK

REACTIONS (2)
  - Wrong technique in product usage process [Unknown]
  - Failure to thrive [Unknown]
